FAERS Safety Report 16919494 (Version 1)
Quarter: 2019Q4

REPORT INFORMATION
  Report Type: Spontaneous
  Country: US (occurrence: US)
  Receive Date: 20190822
  Receipt Date: 20190822
  Transmission Date: 20200122
  Serious: No
  Sender: FDA-Public Use
  Company Number: None

PATIENT
  Age: 53 Year
  Sex: Female

DRUGS (1)
  1. STELARA [Suspect]
     Active Substance: USTEKINUMAB
     Indication: PSORIASIS
     Route: 058
     Dates: start: 201703

REACTIONS (6)
  - Rash [None]
  - Burning sensation [None]
  - Psoriasis [None]
  - Pain [None]
  - Insurance issue [None]
  - Pruritus [None]

NARRATIVE: CASE EVENT DATE: 20190201
